FAERS Safety Report 8841641 (Version 2)
Quarter: 2012Q4

REPORT INFORMATION
  Report Type: 
  Country: AU (occurrence: AU)
  Receive Date: 20121015
  Receipt Date: 20121204
  Transmission Date: 20130627
  Serious: Yes (Death)
  Sender: FDA-Public Use
  Company Number: AU-B.I. PHARMACEUTICALS,INC./RIDGEFIELD-2012-AU-01759AU

PATIENT
  Sex: Male

DRUGS (13)
  1. PRADAXA [Suspect]
     Indication: CEREBROVASCULAR ACCIDENT PROPHYLAXIS
     Dosage: 220 mg
     Dates: start: 20111031
  2. PRADAXA [Suspect]
     Indication: ATRIAL FIBRILLATION
  3. MAXOLON [Concomitant]
  4. MORPHINE [Concomitant]
  5. STEMETIL [Concomitant]
     Route: 048
  6. OXYCONTIN [Concomitant]
  7. BICOR [Concomitant]
  8. ANTIBIOTICS [Concomitant]
  9. LIPITOR [Concomitant]
  10. PARACETAMOL [Concomitant]
  11. UREX FORTE [Concomitant]
  12. SOMAC [Concomitant]
  13. ASTRIX [Concomitant]
     Dosage: 100 mg

REACTIONS (2)
  - Multi-organ failure [Fatal]
  - Pneumonia [Fatal]
